FAERS Safety Report 5620156-2 (Version None)
Quarter: 2008Q1

REPORT INFORMATION
  Report Type: 
  Country: None (occurrence: None)
  Receive Date: 20080208
  Receipt Date: 20080201
  Transmission Date: 20080703
  Serious: Yes (Hospitalization)
  Sender: FDA-Public Use
  Company Number: GR-AVENTIS-200721447GDDC

PATIENT
  Age: 65 Year
  Sex: Male

DRUGS (3)
  1. DOCETAXEL [Suspect]
     Route: 042
     Dates: start: 20071123, end: 20071123
  2. CISPLATIN [Concomitant]
     Route: 042
     Dates: start: 20071123, end: 20071123
  3. ZOLEDRONIC ACID [Concomitant]
     Dates: start: 20071124, end: 20071124

REACTIONS (3)
  - BLOOD CREATININE INCREASED [None]
  - BLOOD POTASSIUM INCREASED [None]
  - BLOOD UREA INCREASED [None]
